FAERS Safety Report 18478311 (Version 2)
Quarter: 2020Q4

REPORT INFORMATION
  Report Type: Spontaneous
  Country: CA (occurrence: CA)
  Receive Date: 20201109
  Receipt Date: 20201218
  Transmission Date: 20210114
  Serious: Yes (Hospitalization)
  Sender: FDA-Public Use
  Company Number: CA-CELLTRION INC.-2020CA017975

PATIENT

DRUGS (1)
  1. INFLECTRA [Suspect]
     Active Substance: INFLIXIMAB-DYYB
     Indication: RHEUMATOID ARTHRITIS
     Dosage: 200 MG, EVERY 6 WEEKS
     Route: 042
     Dates: start: 20200511

REACTIONS (3)
  - Dyspnoea [Recovered/Resolved]
  - Off label use [Unknown]
  - Anxiety [Recovered/Resolved]
